FAERS Safety Report 7970944-2 (Version None)
Quarter: 2011Q4

REPORT INFORMATION
  Report Type: 
  Country: None (occurrence: None)
  Receive Date: 20111122
  Receipt Date: 20110815
  Transmission Date: 20120403
  Serious: No
  Sender: FDA-Public Use
  Company Number: PHEH2011US01844

PATIENT
  Age: 58 Year
  Sex: Female
  Weight: 72.6 kg

DRUGS (1)
  1. GILENYA [Suspect]
     Dosage: 0.5 MG, QD, ORAL
     Route: 048
     Dates: start: 20110805

REACTIONS (3)
  - VISION BLURRED [None]
  - FATIGUE [None]
  - DYSPNOEA [None]
